FAERS Safety Report 8479104-2 (Version None)
Quarter: 2012Q2

REPORT INFORMATION
  Report Type: 
  Country: None (occurrence: None)
  Receive Date: 20120629
  Receipt Date: 20120618
  Transmission Date: 20120825
  Serious: Yes (Other)
  Sender: FDA-Public Use
  Company Number: US-BRISTOL-MYERS SQUIBB COMPANY-16695975

PATIENT
  Age: 20 Year
  Sex: Male

DRUGS (1)
  1. MEGESTROL ACETATE [Suspect]
     Indication: CYSTIC FIBROSIS
     Dosage: 1DF:1-2 MG/KG/DAY

REACTIONS (1)
  - HYPOGONADISM [None]
